FAERS Safety Report 24755055 (Version 2)
Quarter: 2025Q1

REPORT INFORMATION
  Report Type: Spontaneous
  Country: FR (occurrence: FR)
  Receive Date: 20241219
  Receipt Date: 20250206
  Transmission Date: 20250409
  Serious: Yes (Other)
  Sender: SANDOZ
  Company Number: FR-ROCHE-10000149886

PATIENT
  Age: 46 Year
  Sex: Female
  Weight: 53.8 kg

DRUGS (5)
  1. TERIFLUNOMIDE [Suspect]
     Active Substance: TERIFLUNOMIDE
     Indication: Relapsing-remitting multiple sclerosis
     Dosage: START DATE OF MOST RECENT DOSE OF STUDY DRUG03-DEC-2024PRIOR TO AE/SAE
     Route: 048
     Dates: start: 20211004
  2. TERIFLUNOMIDE [Suspect]
     Active Substance: TERIFLUNOMIDE
     Indication: Product used for unknown indication
     Dosage: START DATE OF MOST RECENT DOSE OF STUDY DRUG 03-DEC-2024 PRIOR TO AE/SAE
     Route: 048
     Dates: start: 20211004
  3. DIENOGEST [Concomitant]
     Active Substance: DIENOGEST
     Indication: Contraception
     Dosage: 2.000MG QD
     Route: 048
     Dates: start: 20220316
  4. GLYCERIN [Concomitant]
     Active Substance: GLYCERIN
     Indication: Oedema
     Route: 065
     Dates: start: 20230308
  5. Hylo confort [Concomitant]
     Indication: Eye pruritus
     Route: 047
     Dates: start: 202312

REACTIONS (1)
  - Malignant melanoma [Not Recovered/Not Resolved]

NARRATIVE: CASE EVENT DATE: 20241203
